FAERS Safety Report 7242752-1 (Version None)
Quarter: 2011Q1

REPORT INFORMATION
  Report Type: 
  Country: None (occurrence: None)
  Receive Date: 20110125
  Receipt Date: 20110120
  Transmission Date: 20110831
  Serious: Yes (Other)
  Sender: FDA-Public Use
  Company Number: US-ABBOTT-11P-163-0699816-00

PATIENT
  Sex: Female
  Weight: 90.8 kg

DRUGS (14)
  1. METHOTREXATE [Concomitant]
     Indication: RHEUMATOID ARTHRITIS
     Route: 048
  2. ABILIFY [Concomitant]
     Indication: DEPRESSION
     Route: 048
  3. LORAZEPAM [Concomitant]
     Indication: DEPRESSION
     Route: 048
  4. LORAZEPAM [Concomitant]
     Indication: ANXIETY
  5. LEUCOVORIN [Concomitant]
     Indication: VITAMIN SUPPLEMENTATION
     Route: 048
  6. CARBIDOPA AND LEVODOPA [Concomitant]
     Dosage: 50/200
     Route: 048
     Dates: start: 20101201
  7. HUMIRA [Suspect]
     Indication: RHEUMATOID ARTHRITIS
     Route: 058
     Dates: start: 20080101
  8. ABILIFY [Concomitant]
     Indication: BIPOLAR DISORDER
  9. ARICEPT [Concomitant]
     Indication: DEMENTIA
     Route: 048
     Dates: end: 20101201
  10. VITAMIN D [Concomitant]
     Indication: VITAMIN SUPPLEMENTATION
     Route: 048
  11. PAROXETINE HCL [Concomitant]
     Indication: DEPRESSION
     Route: 048
  12. ARICEPT [Concomitant]
     Indication: CONVULSION
     Route: 048
     Dates: start: 20101201
  13. EVISTA [Concomitant]
     Indication: OSTEOPENIA
     Route: 048
  14. CARBIDOPA AND LEVODOPA [Concomitant]
     Indication: PARKINSONISM
     Dosage: 25/100
     Route: 048
     Dates: end: 20101201

REACTIONS (5)
  - CONVULSION [None]
  - DROOLING [None]
  - INCONTINENCE [None]
  - ILL-DEFINED DISORDER [None]
  - MUSCULAR WEAKNESS [None]
